FAERS Safety Report 4504955-6 (Version None)
Quarter: 2004Q4

REPORT INFORMATION
  Report Type: 
  Country: None (occurrence: None)
  Receive Date: 20041119
  Receipt Date: 20041110
  Transmission Date: 20050328
  Serious: Yes (Death, Hospitalization)
  Sender: FDA-Public Use
  Company Number: CA-JNJFOC-20040500714

PATIENT
  Sex: Female

DRUGS (10)
  1. REMICADE [Suspect]
     Route: 042
  2. REMICADE [Suspect]
     Route: 042
  3. REMICADE [Suspect]
     Indication: RHEUMATOID ARTHRITIS
     Route: 042
  4. OXYCOCET [Concomitant]
     Route: 049
  5. OXYCOCET [Concomitant]
     Indication: PAIN
     Dosage: AS NEEDED
     Route: 049
  6. METHOTREXATE [Concomitant]
     Indication: ARTHRITIS
     Route: 058
  7. CELEBREX [Concomitant]
     Indication: ARTHRITIS
     Route: 049
  8. PLAQUENIL [Concomitant]
  9. DURAGESIC [Concomitant]
     Indication: PAIN
  10. PREDNISONE [Concomitant]

REACTIONS (9)
  - CANDIDA SEPSIS [None]
  - FEELING ABNORMAL [None]
  - HYPOTENSION [None]
  - IUCD COMPLICATION [None]
  - LETHARGY [None]
  - METABOLIC ACIDOSIS [None]
  - PURULENCE [None]
  - RENAL FAILURE ACUTE [None]
  - VAGINAL DISCHARGE [None]
